FAERS Safety Report 17850387 (Version 3)
Quarter: 2021Q1

REPORT INFORMATION
  Report Type: Spontaneous
  Country: US (occurrence: US)
  Receive Date: 20200602
  Receipt Date: 20210120
  Transmission Date: 20210419
  Serious: Yes (Other)
  Sender: FDA-Public Use
  Company Number: US-PFIZER INC-2020214666

PATIENT
  Age: 61 Year
  Sex: Male

DRUGS (2)
  1. XELJANZ [Suspect]
     Active Substance: TOFACITINIB CITRATE
     Indication: SPINAL COLUMN INJURY
  2. XELJANZ [Suspect]
     Active Substance: TOFACITINIB CITRATE
     Indication: RHEUMATOID ARTHRITIS
     Dosage: 5 MG, 2X/DAY
     Route: 048
     Dates: start: 2019

REACTIONS (11)
  - Eating disorder [Unknown]
  - Paralysis [Unknown]
  - Product dose omission issue [Unknown]
  - Malaise [Unknown]
  - Mobility decreased [Unknown]
  - Pain [Unknown]
  - Pruritus [Unknown]
  - Feeling abnormal [Unknown]
  - Nausea [Unknown]
  - Dizziness [Unknown]
  - Decreased appetite [Unknown]
